FAERS Safety Report 15737130 (Version 2)
Quarter: 2019Q1

REPORT INFORMATION
  Report Type: Spontaneous
  Country: US (occurrence: US)
  Receive Date: 20181218
  Receipt Date: 20190222
  Transmission Date: 20190417
  Serious: Yes (Other)
  Sender: FDA-Public Use
  Company Number: US-SA-2018SA340686

PATIENT
  Age: 52 Year
  Sex: Female
  Weight: 87.54 kg

DRUGS (10)
  1. TAXOTERE [Suspect]
     Active Substance: DOCETAXEL
     Indication: BREAST CANCER FEMALE
     Dosage: 75 MG, Q3W
     Route: 042
     Dates: start: 20120220, end: 20120220
  2. LORATADINE. [Concomitant]
     Active Substance: LORATADINE
  3. ATENOLOL. [Concomitant]
     Active Substance: ATENOLOL
  4. RANITIDINE. [Concomitant]
     Active Substance: RANITIDINE
  5. ALBUTEROL [SALBUTAMOL] [Concomitant]
     Active Substance: ALBUTEROL
  6. TAXOTERE [Suspect]
     Active Substance: DOCETAXEL
     Dosage: 75 MG, Q3W
     Route: 042
     Dates: start: 20120502, end: 20120502
  7. DULOXETINE. [Concomitant]
     Active Substance: DULOXETINE
  8. ADRIAMYCIN [Concomitant]
     Active Substance: DOXORUBICIN HYDROCHLORIDE
  9. METHYLDOPA. [Concomitant]
     Active Substance: METHYLDOPA
  10. LEVOTHYROXINE. [Concomitant]
     Active Substance: LEVOTHYROXINE

REACTIONS (2)
  - Psychological trauma [Unknown]
  - Alopecia [Recovering/Resolving]
